FAERS Safety Report 9098880 (Version 2)
Quarter: 2013Q1

REPORT INFORMATION
  Report Type: Spontaneous
  Country: DE (occurrence: DE)
  Receive Date: 20130213
  Receipt Date: 20130325
  Transmission Date: 20140127
  Serious: Yes (Hospitalization)
  Sender: FDA-Public Use
  Company Number: PHHY2013DE013583

PATIENT
  Age: 69 Year
  Sex: Male

DRUGS (2)
  1. PREDNISOLONE [Suspect]
     Indication: INFLAMMATORY BOWEL DISEASE
     Dosage: 80 MG, PER DAY
  2. METOPROLOL [Concomitant]
     Indication: DIABETES MELLITUS
     Dosage: 95 MG, UNK

REACTIONS (18)
  - Somnolence [Unknown]
  - Disturbance in attention [Recovering/Resolving]
  - Pleural effusion [Recovering/Resolving]
  - Bronchitis chronic [Unknown]
  - Sepsis [Unknown]
  - Urosepsis [Recovering/Resolving]
  - Pyomyositis [Unknown]
  - Listless [Recovering/Resolving]
  - Myalgia [Recovering/Resolving]
  - Pain of skin [Recovering/Resolving]
  - Hypokinesia [Unknown]
  - Muscle abscess [Recovering/Resolving]
  - Erythema [Recovering/Resolving]
  - Quadriparesis [Unknown]
  - Muscular weakness [Recovering/Resolving]
  - Musculoskeletal stiffness [Recovering/Resolving]
  - Abasia [Recovering/Resolving]
  - Hyperglycaemia [Unknown]
